FAERS Safety Report 11300728 (Version 1)
Quarter: 2015Q3

REPORT INFORMATION
  Report Type: Spontaneous
  Country: US (occurrence: US)
  Receive Date: 20150722
  Receipt Date: 20150722
  Transmission Date: 20151125
  Serious: No
  Sender: FDA-Public Use
  Company Number: US-ELI_LILLY_AND_COMPANY-US201209001575

PATIENT
  Age: 59 Year
  Sex: Male
  Weight: 88.44 kg

DRUGS (12)
  1. VITAMIN B3 [Concomitant]
     Active Substance: NIACIN
     Dosage: 200 MG, QD
  2. EFFIENT [Suspect]
     Active Substance: PRASUGREL HYDROCHLORIDE
     Indication: CORONARY ARTERIAL STENT INSERTION
     Dosage: 10 MG, QD
     Route: 048
     Dates: start: 20120530
  3. ASPIRIN. [Concomitant]
     Active Substance: ASPIRIN
     Dosage: 162 MG, QD
  4. MULTIVIT [Concomitant]
     Active Substance: VITAMINS
  5. OMEPRAZOLE. [Concomitant]
     Active Substance: OMEPRAZOLE
     Dosage: 20 MG, QD
  6. FISH OIL [Concomitant]
     Active Substance: FISH OIL
  7. LIVALO [Concomitant]
     Active Substance: PITAVASTATIN CALCIUM
     Dosage: 4 MG, QD
  8. HYDROCHLOROTHIAZIDE. [Concomitant]
     Active Substance: HYDROCHLOROTHIAZIDE
     Dosage: 12.5 MG, QD
  9. SAW PALMETTO [Concomitant]
     Active Substance: SAW PALMETTO
  10. COENZYME Q10 [Concomitant]
     Active Substance: UBIDECARENONE
     Dosage: 150 MG, QD
  11. ENALAPRIL [Concomitant]
     Active Substance: ENALAPRIL
     Dosage: 20 MG, QD
  12. TOPAMAX [Concomitant]
     Active Substance: TOPIRAMATE
     Dosage: 400 MG, QD

REACTIONS (7)
  - Skin abrasion [Unknown]
  - Fall [Unknown]
  - Haemorrhage [Unknown]
  - Head injury [Unknown]
  - Radius fracture [Not Recovered/Not Resolved]
  - Arthralgia [Not Recovered/Not Resolved]
  - Contusion [Unknown]
